FAERS Safety Report 15866208 (Version 2)
Quarter: 2019Q2

REPORT INFORMATION
  Report Type: Spontaneous
  Country: US (occurrence: US)
  Receive Date: 20190125
  Receipt Date: 20190508
  Transmission Date: 20190711
  Serious: No
  Sender: FDA-Public Use
  Company Number: US-PFIZER INC-2019031714

PATIENT
  Age: 59 Year
  Sex: Male

DRUGS (1)
  1. SOMAVERT [Suspect]
     Active Substance: PEGVISOMANT
     Indication: ACROMEGALY
     Dosage: 10 MG, DAILY
     Route: 058
     Dates: start: 20190112

REACTIONS (4)
  - Drug ineffective [Unknown]
  - Chills [Unknown]
  - Gastrointestinal disorder [Unknown]
  - Hyperaesthesia [Unknown]
